FAERS Safety Report 20527927 (Version 3)
Quarter: 2022Q1

REPORT INFORMATION
  Report Type: Spontaneous
  Country: US (occurrence: US)
  Receive Date: 20220228
  Receipt Date: 20220310
  Transmission Date: 20220424
  Serious: Yes (Other)
  Sender: FDA-Public Use
  Company Number: US-ALXN-A202202685

PATIENT
  Age: 15 Year
  Sex: Female
  Weight: 80 kg

DRUGS (2)
  1. ULTOMIRIS [Suspect]
     Active Substance: RAVULIZUMAB-CWVZ
     Dosage: UNK, EVERY 6 WEEKS
     Route: 042
  2. ULTOMIRIS [Suspect]
     Active Substance: RAVULIZUMAB-CWVZ
     Indication: Paroxysmal nocturnal haemoglobinuria
     Dosage: UNK, EVERY 8 WEEKS
     Route: 042

REACTIONS (5)
  - Haemoglobin decreased [Unknown]
  - Reticulocyte count increased [Unknown]
  - Blood bilirubin abnormal [Unknown]
  - Off label use [Unknown]
  - Fatigue [Unknown]
